FAERS Safety Report 5849700-7 (Version None)
Quarter: 2008Q3

REPORT INFORMATION
  Report Type: 
  Country: None (occurrence: None)
  Receive Date: 20080819
  Receipt Date: 20080808
  Transmission Date: 20090109
  Serious: Yes (Other)
  Sender: FDA-Public Use
  Company Number: US-JNJFOC-20080802788

PATIENT
  Age: 56 Year
  Sex: Female

DRUGS (2)
  1. TYLENOL (CAPLET) [Suspect]
     Indication: PAIN
  2. TYLENOL (CAPLET) [Suspect]
     Indication: MYALGIA
     Dosage: DAILY

REACTIONS (1)
  - HAEMATOCHEZIA [None]
